FAERS Safety Report 23318502 (Version 1)
Quarter: 2023Q4

REPORT INFORMATION
  Report Type: Spontaneous
  Country: US (occurrence: US)
  Receive Date: 20231220
  Receipt Date: 20231220
  Transmission Date: 20240109
  Serious: Yes (Hospitalization)
  Sender: FDA-Public Use
  Company Number: US-MACLEODS PHARMACEUTICALS US LTD-MAC2023044865

PATIENT

DRUGS (2)
  1. METHIMAZOLE [Suspect]
     Active Substance: METHIMAZOLE
     Indication: Graves^ disease
     Dosage: 10 MILLIGRAM, QD
     Route: 065
  2. AMOXICILLIN\CLAVULANATE POTASSIUM [Concomitant]
     Active Substance: AMOXICILLIN\CLAVULANATE POTASSIUM
     Indication: Product used for unknown indication
     Dosage: UNK
     Route: 065

REACTIONS (3)
  - Hyperthyroidism [Unknown]
  - Withdrawal syndrome [Unknown]
  - Agranulocytosis [Recovered/Resolved]
